FAERS Safety Report 6449775-0 (Version None)
Quarter: 2009Q4

REPORT INFORMATION
  Report Type: 
  Country: None (occurrence: None)
  Receive Date: 20091120
  Receipt Date: 20091110
  Transmission Date: 20100525
  Serious: Yes (Death, Other)
  Sender: FDA-Public Use
  Company Number: GR-SANOFI-AVENTIS-F01200901051

PATIENT

DRUGS (3)
  1. OXALIPLATIN [Suspect]
     Dosage: 85 MG/M2
     Route: 041
  2. CAPECITABINE [Suspect]
     Dosage: 1500 MG/M2
     Route: 065
  3. BEVACIZUMAB [Suspect]
     Dosage: 5 MG/KG
     Route: 065

REACTIONS (8)
  - DIARRHOEA [None]
  - DISEASE PROGRESSION [None]
  - FATIGUE [None]
  - HYPERSENSITIVITY [None]
  - INTESTINAL PERFORATION [None]
  - NEUROTOXICITY [None]
  - NEUTROPENIA [None]
  - SUDDEN DEATH [None]
